FAERS Safety Report 7683583-8 (Version None)
Quarter: 2011Q3

REPORT INFORMATION
  Report Type: 
  Country: None (occurrence: None)
  Receive Date: 20110815
  Receipt Date: 20110804
  Transmission Date: 20111222
  Serious: Yes (Hospitalization)
  Sender: FDA-Public Use
  Company Number: GB-ASTRAZENECA-2011SE46541

PATIENT
  Age: 20 Year
  Sex: Male

DRUGS (5)
  1. ANTIPSEUDOMONAL ANTIBIOTIC [Suspect]
     Route: 042
  2. OMEPRAZOLE [Suspect]
  3. AZITHROMYCIN [Suspect]
  4. CORTICOSTEROIDS [Concomitant]
     Indication: LUNG CONSOLIDATION
  5. CIPROFLOXACIN [Suspect]
     Route: 048

REACTIONS (4)
  - CLOSTRIDIUM DIFFICILE COLITIS [None]
  - DIARRHOEA [None]
  - PSEUDOMEMBRANOUS COLITIS [None]
  - APPENDICECTOMY [None]
